FAERS Safety Report 7741657-7 (Version None)
Quarter: 2011Q3

REPORT INFORMATION
  Report Type: 
  Country: None (occurrence: None)
  Receive Date: 20110912
  Receipt Date: 20110810
  Transmission Date: 20111222
  Serious: Yes (Hospitalization, Other)
  Sender: FDA-Public Use
  Company Number: DE-RANBAXY-2011US-42946

PATIENT

DRUGS (8)
  1. PANTOPRAZOLE [Suspect]
     Indication: GASTRITIS
     Dosage: 40 MG, QD
     Route: 065
     Dates: start: 20110201
  2. SERTRALINE HYDROCHLORIDE [Suspect]
     Indication: DEPRESSION
     Dosage: 100 MG, BID
     Route: 048
     Dates: start: 20110201, end: 20110201
  3. PROTONIX [Suspect]
     Indication: GASTRITIS
     Dosage: 40 MG, QD
     Route: 048
     Dates: start: 20090601, end: 20110201
  4. PROTONIX [Suspect]
     Dosage: 40 MG, QD
     Route: 048
     Dates: start: 20110101
  5. LIPITOR [Suspect]
     Indication: PRODUCT USED FOR UNKNOWN INDICATION
     Dosage: UNK
     Route: 065
  6. ZOLOFT [Suspect]
     Indication: DEPRESSION
     Dosage: 50 MG, UNK
     Route: 048
     Dates: start: 20100801, end: 20110201
  7. ZOLOFT [Suspect]
     Dosage: 150 MG UNK
     Route: 048
     Dates: end: 20110201
  8. ZOLOFT [Suspect]
     Dosage: 100 MG, UNK
     Route: 048

REACTIONS (6)
  - ABDOMINAL PAIN UPPER [None]
  - ABDOMINAL DISTENSION [None]
  - HEPATITIS [None]
  - DRUG INEFFECTIVE [None]
  - HAEMATEMESIS [None]
  - BLOOD CHOLESTEROL INCREASED [None]
